FAERS Safety Report 9555441 (Version 1)
Quarter: 2013Q3

REPORT INFORMATION
  Report Type: Spontaneous
  Country: FR (occurrence: FR)
  Receive Date: 20130926
  Receipt Date: 20130926
  Transmission Date: 20140515
  Serious: Yes (Death, Hospitalization)
  Sender: FDA-Public Use
  Company Number: FR-JNJFOC-20130909473

PATIENT
  Age: 80 Year
  Sex: Female

DRUGS (6)
  1. RISPERDALORO [Suspect]
     Indication: PRODUCT USED FOR UNKNOWN INDICATION
     Route: 048
     Dates: end: 20101030
  2. PROZAC [Suspect]
     Indication: PRODUCT USED FOR UNKNOWN INDICATION
     Route: 048
     Dates: end: 20101030
  3. NOCTRAN [Suspect]
     Indication: PRODUCT USED FOR UNKNOWN INDICATION
     Route: 065
     Dates: end: 20101030
  4. SERESTA [Suspect]
     Indication: PRODUCT USED FOR UNKNOWN INDICATION
     Route: 048
     Dates: start: 20101021, end: 20101030
  5. ACUITEL [Concomitant]
     Route: 065
  6. TEMESTA [Concomitant]
     Route: 065

REACTIONS (4)
  - Fall [Fatal]
  - Rhabdomyolysis [Fatal]
  - Pneumonia aspiration [Fatal]
  - Dehydration [Unknown]
